FAERS Safety Report 22002709 (Version 2)
Quarter: 2023Q1

REPORT INFORMATION
  Report Type: Spontaneous
  Country: JP (occurrence: JP)
  Receive Date: 20230217
  Receipt Date: 20230321
  Transmission Date: 20230417
  Serious: Yes (Other)
  Sender: FDA-Public Use
  Company Number: JP-002147023-NVSJ2023JP003118

PATIENT
  Age: 24 Year
  Sex: Male

DRUGS (1)
  1. SCEMBLIX [Suspect]
     Active Substance: ASCIMINIB HYDROCHLORIDE
     Indication: Chronic myeloid leukaemia
     Dosage: 20 MG
     Route: 048
     Dates: start: 20221115

REACTIONS (3)
  - Cardiac failure acute [Unknown]
  - Pleural effusion [Unknown]
  - Gastroenteritis [Unknown]
